FAERS Safety Report 17582934 (Version 1)
Quarter: 2020Q1

REPORT INFORMATION
  Report Type: Spontaneous
  Country: US (occurrence: US)
  Receive Date: 20200325
  Receipt Date: 20200325
  Transmission Date: 20200409
  Serious: Yes (Hospitalization)
  Sender: FDA-Public Use
  Company Number: US-VERASTEM-2020-00022

PATIENT

DRUGS (4)
  1. COPIKTRA [Suspect]
     Active Substance: DUVELISIB
     Dosage: 25 MG, QOD
     Route: 048
     Dates: start: 2020
  2. COPIKTRA [Suspect]
     Active Substance: DUVELISIB
     Indication: NON-HODGKIN^S LYMPHOMA
     Dosage: 25 MG, BID
     Route: 048
     Dates: start: 20200106, end: 2020
  3. COPIKTRA [Suspect]
     Active Substance: DUVELISIB
     Dosage: 25 MG, QD
     Route: 048
     Dates: start: 2020, end: 2020
  4. BACTRIM [Concomitant]
     Active Substance: SULFAMETHOXAZOLE\TRIMETHOPRIM
     Indication: PRODUCT USED FOR UNKNOWN INDICATION
     Dosage: UNK, UNK
     Route: 065
     Dates: start: 20200210

REACTIONS (7)
  - Rash [Recovering/Resolving]
  - Drug hypersensitivity [Unknown]
  - Pyrexia [Unknown]
  - Vomiting [Unknown]
  - Diarrhoea [Recovering/Resolving]
  - Fatigue [Unknown]
  - Product use in unapproved indication [Not Recovered/Not Resolved]

NARRATIVE: CASE EVENT DATE: 2020
